FAERS Safety Report 4779607-8 (Version None)
Quarter: 2005Q3

REPORT INFORMATION
  Report Type: 
  Country: None (occurrence: None)
  Receive Date: 20050914
  Receipt Date: 20040820
  Transmission Date: 20060218
  Serious: Yes (Death)
  Sender: FDA-Public Use
  Company Number: 163-20785-04060556

PATIENT
  Age: 80 Year
  Sex: Female

DRUGS (1)
  1. THALOMID [Suspect]
     Indication: MULTIPLE MYELOMA
     Dosage: 50 MG DAILY X 2 WEEKS; THEN 100 MG DAILY X 2 WEEKS, ORAL
     Route: 048
     Dates: start: 20040408, end: 20040415

REACTIONS (5)
  - CARDIO-RESPIRATORY ARREST [None]
  - DEATH [None]
  - DISEASE PROGRESSION [None]
  - HYPERCALCAEMIA [None]
  - RENAL FAILURE ACUTE [None]
